FAERS Safety Report 23128716 (Version 1)
Quarter: 2023Q4

REPORT INFORMATION
  Report Type: Spontaneous
  Country: ID (occurrence: ID)
  Receive Date: 20231031
  Receipt Date: 20231031
  Transmission Date: 20240110
  Serious: Yes (Death, Hospitalization, Other)
  Sender: FDA-Public Use
  Company Number: ID-JNJFOC-20231066637

PATIENT

DRUGS (4)
  1. SIRTURO [Suspect]
     Active Substance: BEDAQUILINE FUMARATE
     Indication: Tuberculosis
     Route: 048
  2. PRETOMANID [Suspect]
     Active Substance: PRETOMANID
     Indication: Tuberculosis
     Route: 065
  3. LINEZOLID [Suspect]
     Active Substance: LINEZOLID
     Indication: Tuberculosis
     Route: 065
  4. LINEZOLID [Suspect]
     Active Substance: LINEZOLID
     Route: 065

REACTIONS (7)
  - Death [Fatal]
  - Treatment failure [Unknown]
  - Neuropathy peripheral [Unknown]
  - Myelosuppression [Unknown]
  - Hepatotoxicity [Unknown]
  - Optic neuritis [Unknown]
  - Electrocardiogram QT prolonged [Unknown]
